FAERS Safety Report 18767128 (Version 1)
Quarter: 2021Q1

REPORT INFORMATION
  Report Type: Spontaneous
  Country: US (occurrence: US)
  Receive Date: 20210120
  Receipt Date: 20210120
  Transmission Date: 20210419
  Serious: No
  Sender: FDA-Public Use
  Company Number: None

PATIENT
  Age: 72 Year
  Sex: Male
  Weight: 71.6 kg

DRUGS (17)
  1. ALLOPURINOL. [Concomitant]
     Active Substance: ALLOPURINOL
  2. PRAVASTATIN SODIUM. [Concomitant]
     Active Substance: PRAVASTATIN SODIUM
  3. ACETAMINOPHEN. [Concomitant]
     Active Substance: ACETAMINOPHEN
  4. ASPIRIN 81 [Concomitant]
     Active Substance: ASPIRIN
  5. HYDRALAZINE HCL [Concomitant]
     Active Substance: HYDRALAZINE HYDROCHLORIDE
  6. POTASSIUM CHLORIDE IN D5W [Concomitant]
  7. SPRYCEL [Suspect]
     Active Substance: DASATINIB
     Indication: MYELOPROLIFERATIVE NEOPLASM
     Route: 048
     Dates: start: 20201222
  8. MEGARED OMEGA?3 KRILL OIL [Concomitant]
  9. HEPARIN [Concomitant]
     Active Substance: HEPARIN SODIUM
  10. ASCORBIC ACID. [Concomitant]
     Active Substance: ASCORBIC ACID
  11. MAGNESIUM LACTATE [Concomitant]
     Active Substance: MAGNESIUM LACTATE
  12. VITAMIN D3 [Concomitant]
     Active Substance: CHOLECALCIFEROL
  13. COENZYME Q10 [Concomitant]
     Active Substance: DIETARY SUPPLEMENT\UBIDECARENONE
  14. VITAMIN C [Concomitant]
     Active Substance: ASCORBIC ACID
  15. AMLODIPINE BESYLATE. [Concomitant]
     Active Substance: AMLODIPINE BESYLATE
  16. MAGNESIUM SULFATE. [Concomitant]
     Active Substance: MAGNESIUM SULFATE
  17. TAMSULOSIN HCL [Concomitant]
     Active Substance: TAMSULOSIN HYDROCHLORIDE

REACTIONS (1)
  - Rash pruritic [None]

NARRATIVE: CASE EVENT DATE: 20210113
